FAERS Safety Report 9267391 (Version 2)
Quarter: 2013Q4

REPORT INFORMATION
  Report Type: Spontaneous
  Country: US (occurrence: US)
  Receive Date: 20130502
  Receipt Date: 20131129
  Transmission Date: 20140711
  Serious: No
  Sender: FDA-Public Use
  Company Number: US-JNJFOC-20130411995

PATIENT
  Age: 51 Year
  Sex: Male
  Weight: 95.26 kg

DRUGS (6)
  1. SANDOZ FENTANYL TRANSDERMAL SYSTEM [Suspect]
     Indication: BACK PAIN
     Route: 062
     Dates: start: 2012
  2. FLEXERIL [Concomitant]
     Indication: HYPOTONIA
     Route: 048
  3. NEURONTIN [Concomitant]
     Indication: ARTHRITIS
     Route: 048
  4. ULTRAM [Concomitant]
     Indication: HYPOTONIA
     Route: 048
     Dates: start: 2011
  5. ULTRAM [Concomitant]
     Indication: PAIN
     Route: 048
     Dates: start: 2011
  6. VICODIN [Concomitant]
     Indication: PAIN
     Route: 048

REACTIONS (4)
  - Bedridden [Recovered/Resolved]
  - Product adhesion issue [Unknown]
  - Wrong technique in drug usage process [Not Recovered/Not Resolved]
  - Arthralgia [Not Recovered/Not Resolved]
